FAERS Safety Report 4969458-3 (Version None)
Quarter: 2006Q2

REPORT INFORMATION
  Report Type: 
  Country: None (occurrence: None)
  Receive Date: 20060406
  Receipt Date: 20060330
  Transmission Date: 20061013
  Serious: Yes (Other)
  Sender: FDA-Public Use
  Company Number: 200610698BCC

PATIENT
  Age: 37 Year
  Sex: Male
  Weight: 54.4316 kg

DRUGS (6)
  1. MILK OF MAGNESIA TAB [Suspect]
     Indication: CONSTIPATION
     Dosage: 30 ML, ONCE, ORAL
     Route: 048
     Dates: start: 20060207
  2. ULTRAM [Concomitant]
  3. NEURONTIN [Concomitant]
  4. DIAZEPAM [Concomitant]
  5. NEXIUM [Concomitant]
  6. ANTIBIOTICS [Concomitant]

REACTIONS (3)
  - BLOOD URINE PRESENT [None]
  - CYSTITIS [None]
  - THERAPY NON-RESPONDER [None]
